FAERS Safety Report 5211567-8 (Version None)
Quarter: 2007Q1

REPORT INFORMATION
  Report Type: 
  Country: None (occurrence: None)
  Receive Date: 20070117
  Receipt Date: 20070117
  Transmission Date: 20070707
  Serious: No
  Sender: FDA-Public Use
  Company Number: None

PATIENT
  Age: 55 Year
  Sex: Female
  Weight: 93.441 kg

DRUGS (2)
  1. CYMBALTA [Suspect]
     Indication: DEPRESSION
     Dosage: 60MG QD
     Dates: start: 20061019, end: 20070115
  2. METFORMIN HCL [Concomitant]

REACTIONS (8)
  - CONSTIPATION [None]
  - CONVULSION [None]
  - DIZZINESS [None]
  - DRY MOUTH [None]
  - HEART RATE INCREASED [None]
  - HOT FLUSH [None]
  - NIGHTMARE [None]
  - TREMOR [None]
